FAERS Safety Report 7512474-8 (Version None)
Quarter: 2011Q2

REPORT INFORMATION
  Report Type: 
  Country: None (occurrence: None)
  Receive Date: 20110531
  Receipt Date: 20110523
  Transmission Date: 20111010
  Serious: Yes (Other)
  Sender: FDA-Public Use
  Company Number: BR-ROCHE-774658

PATIENT
  Sex: Female
  Weight: 87 kg

DRUGS (3)
  1. ANTHRACYCLINE NOS/CYCLOPHOSPHAMIDE [Concomitant]
     Dosage: FREQUENCY: 4 CYCLES
     Route: 042
     Dates: start: 20041101
  2. HERCEPTIN [Suspect]
     Route: 042
     Dates: start: 20070608, end: 20080616
  3. TAXOL [Concomitant]
     Dosage: FREQUENCY: 4 CYCLES
     Route: 042
     Dates: start: 20060801

REACTIONS (1)
  - ANAL FISSURE [None]
